FAERS Safety Report 5055471-7 (Version None)
Quarter: 2006Q3

REPORT INFORMATION
  Report Type: 
  Country: None (occurrence: None)
  Receive Date: 20060714
  Receipt Date: 20060630
  Transmission Date: 20061208
  Serious: Yes (Hospitalization, Other)
  Sender: FDA-Public Use
  Company Number: HQWYE661302AUG05

PATIENT
  Age: 53 Year
  Sex: Female
  Weight: 88.1 kg

DRUGS (1)
  1. MYLOTARG [Suspect]
     Indication: ACUTE MYELOID LEUKAEMIA
     Dosage: 11.6 MG 1X PER 1 DAY, INTRAVENOUS
     Route: 042
     Dates: start: 20050708, end: 20050708

REACTIONS (6)
  - CANDIDIASIS [None]
  - DYSPNOEA [None]
  - FEBRILE NEUTROPENIA [None]
  - HYPOXIA [None]
  - LUNG NEOPLASM [None]
  - WHITE BLOOD CELL COUNT DECREASED [None]
